FAERS Safety Report 9736714 (Version 3)
Quarter: 2015Q3

REPORT INFORMATION
  Report Type: Spontaneous
  Country: US (occurrence: US)
  Receive Date: 20131206
  Receipt Date: 20150804
  Transmission Date: 20151125
  Serious: No
  Sender: FDA-Public Use
  Company Number: US-GILEAD-2009-0023976

PATIENT
  Age: 56 Year
  Sex: Female
  Weight: 79.38 kg

DRUGS (15)
  1. PRISTIQ EXTENDED RELEASE [Concomitant]
     Active Substance: DESVENLAFAXINE SUCCINATE
  2. HUMALOG [Concomitant]
     Active Substance: INSULIN LISPRO
  3. ASMANEX [Concomitant]
     Active Substance: MOMETASONE FUROATE
  4. LANTUS [Concomitant]
     Active Substance: INSULIN GLARGINE
  5. METOPROLOL [Concomitant]
     Active Substance: METOPROLOL
  6. LYRICA [Concomitant]
     Active Substance: PREGABALIN
  7. OXYGEN. [Concomitant]
     Active Substance: OXYGEN
  8. MOTILIUM [Concomitant]
     Active Substance: DOMPERIDONE
  9. LETAIRIS [Suspect]
     Active Substance: AMBRISENTAN
     Indication: PULMONARY ARTERIAL HYPERTENSION
     Route: 048
     Dates: start: 20090130
  10. IPRATROPIUM [Concomitant]
     Active Substance: IPRATROPIUM
  11. LIPITOR [Concomitant]
     Active Substance: ATORVASTATIN CALCIUM
  12. SYMBICORT [Concomitant]
     Active Substance: BUDESONIDE\FORMOTEROL FUMARATE DIHYDRATE
  13. METOCLOPRAMIDE. [Concomitant]
     Active Substance: METOCLOPRAMIDE
  14. MULTIVITAMIN [Concomitant]
     Active Substance: VITAMINS
  15. ALBUTEROL. [Concomitant]
     Active Substance: ALBUTEROL

REACTIONS (2)
  - Anaemia [Unknown]
  - Blood glucose fluctuation [Unknown]
